FAERS Safety Report 15822641 (Version 1)
Quarter: 2019Q1

REPORT INFORMATION
  Report Type: Spontaneous
  Country: FR (occurrence: FR)
  Receive Date: 20190114
  Receipt Date: 20190114
  Transmission Date: 20190417
  Serious: Yes (Other)
  Sender: FDA-Public Use
  Company Number: PHHY2019FR004894

PATIENT
  Age: 47 Year
  Sex: Female
  Weight: 69 kg

DRUGS (4)
  1. BUDESONIDE. [Suspect]
     Active Substance: BUDESONIDE
     Indication: ASTHMA
     Dosage: 2 DF, QD (UG/L)
     Route: 065
     Dates: start: 20160318
  2. FORMOTEROL [Suspect]
     Active Substance: FORMOTEROL
     Indication: ASTHMA
     Dosage: 2 DF, QD (UG/L)
     Route: 065
     Dates: start: 20160318
  3. PYOSTACINE [Suspect]
     Active Substance: PRISTINAMYCIN
     Indication: SINUSITIS
  4. PYOSTACINE [Suspect]
     Active Substance: PRISTINAMYCIN
     Indication: ASTHMA
     Dosage: 3 G, QD
     Route: 065
     Dates: start: 20160318, end: 20160326

REACTIONS (6)
  - Gamma-glutamyltransferase increased [Unknown]
  - Hepatic enzyme abnormal [Unknown]
  - Transaminases increased [Unknown]
  - Vomiting [Unknown]
  - Hepatitis [Unknown]
  - General physical health deterioration [Unknown]

NARRATIVE: CASE EVENT DATE: 20160318
